FAERS Safety Report 23302647 (Version 1)
Quarter: 2023Q4

REPORT INFORMATION
  Report Type: Spontaneous
  Country: US (occurrence: None)
  Receive Date: 20231215
  Receipt Date: 20231215
  Transmission Date: 20240110
  Serious: Yes (Death, Life-Threatening)
  Sender: FDA-Public Use
  Company Number: 2023A285008

PATIENT
  Age: 57 Year
  Sex: Male

DRUGS (6)
  1. QUETIAPINE [Suspect]
     Active Substance: QUETIAPINE
     Route: 048
  2. VENLAFAXINE [Suspect]
     Active Substance: VENLAFAXINE HYDROCHLORIDE
  3. METHOCARBAMOL [Suspect]
     Active Substance: METHOCARBAMOL
  4. PRAZOSIN [Suspect]
     Active Substance: PRAZOSIN
  5. CLONAZEPAM [Suspect]
     Active Substance: CLONAZEPAM
  6. ALCOHOL [Suspect]
     Active Substance: ALCOHOL

REACTIONS (3)
  - Toxicity to various agents [Fatal]
  - Completed suicide [Fatal]
  - Cardio-respiratory arrest [Fatal]
